FAERS Safety Report 7001391-8 (Version None)
Quarter: 2010Q3

REPORT INFORMATION
  Report Type: 
  Country: None (occurrence: None)
  Receive Date: 20100920
  Receipt Date: 20100610
  Transmission Date: 20110219
  Serious: No
  Sender: FDA-Public Use
  Company Number: US-ASTRAZENECA-2009UW00209

PATIENT
  Age: 15 Year
  Sex: Female
  Weight: 90.7 kg

DRUGS (5)
  1. SEROQUEL [Suspect]
     Indication: BIPOLAR DISORDER
     Route: 048
     Dates: start: 20000101
  2. SEROQUEL [Suspect]
     Indication: DEPRESSION
     Route: 048
     Dates: start: 20000101
  3. ABILIFY [Concomitant]
     Dates: start: 20050101
  4. DEPAKOTE [Concomitant]
     Dates: start: 20020101
  5. CYMBALTA [Concomitant]
     Dates: start: 20000101

REACTIONS (5)
  - AMNESIA [None]
  - DIABETES MELLITUS [None]
  - FEELING ABNORMAL [None]
  - SOMNOLENCE [None]
  - SUICIDAL IDEATION [None]
